FAERS Safety Report 5507520-7 (Version None)
Quarter: 2007Q4

REPORT INFORMATION
  Report Type: 
  Country: None (occurrence: None)
  Receive Date: 20071105
  Receipt Date: 20071105
  Transmission Date: 20080405
  Serious: Yes (Hospitalization, Other)
  Sender: FDA-Public Use
  Company Number: None

PATIENT
  Sex: Female

DRUGS (9)
  1. REVLIMID [Suspect]
     Indication: MULTIPLE MYELOMA
     Dosage: 25MG  DAILY X 21D/28D  PO
     Route: 048
     Dates: start: 20070629, end: 20070920
  2. ZOMETA [Concomitant]
  3. ATENOLOL [Concomitant]
  4. VICODIN [Concomitant]
  5. FAMOTIDINE [Concomitant]
  6. AMBIEN [Concomitant]
  7. ACYCLOVIR [Concomitant]
  8. IBUPROFEN [Concomitant]
  9. PREPARATION H OINTMENT [Concomitant]

REACTIONS (3)
  - BACK PAIN [None]
  - HERPES ZOSTER [None]
  - LIGHT CHAIN ANALYSIS INCREASED [None]
